FAERS Safety Report 5067864-2 (Version None)
Quarter: 2006Q3

REPORT INFORMATION
  Report Type: 
  Country: None (occurrence: None)
  Receive Date: 20060731
  Receipt Date: 20060711
  Transmission Date: 20061208
  Serious: Yes (Hospitalization)
  Sender: FDA-Public Use
  Company Number: 163-20785-06070536

PATIENT
  Age: 56 Year
  Sex: Male

DRUGS (7)
  1. THALOMID [Suspect]
     Indication: MULTIPLE MYELOMA
     Dosage: 2 IN 1 D, ORAL
     Route: 048
     Dates: start: 20051101, end: 20060316
  2. DEXAMETHASONE [Suspect]
     Indication: MULTIPLE MYELOMA
  3. COUMADIN [Concomitant]
  4. PERCOCET [Concomitant]
  5. ATENOLOL [Concomitant]
  6. DULCOLAX (BISACODYL) (SUPPOSITORY) [Concomitant]
  7. OXYGEN (OXYGEN) [Concomitant]

REACTIONS (12)
  - BONE LESION [None]
  - COMPUTERISED TOMOGRAM ABNORMAL [None]
  - FIBRIN D DIMER INCREASED [None]
  - INTERNATIONAL NORMALISED RATIO DECREASED [None]
  - LUNG DISORDER [None]
  - LUNG INFILTRATION [None]
  - MUSCULOSKELETAL CHEST PAIN [None]
  - OXYGEN SATURATION DECREASED [None]
  - PLEURAL EFFUSION [None]
  - PULMONARY EMBOLISM [None]
  - PULMONARY HYPERTENSION [None]
  - RIGHT VENTRICULAR FAILURE [None]
